FAERS Safety Report 5866968-1 (Version None)
Quarter: 2008Q3

REPORT INFORMATION
  Report Type: 
  Country: None (occurrence: None)
  Receive Date: 20080827
  Receipt Date: 20080811
  Transmission Date: 20090109
  Serious: Yes (Hospitalization)
  Sender: FDA-Public Use
  Company Number: CIP08001544

PATIENT
  Age: 65 Year
  Sex: Female

DRUGS (10)
  1. ACTONEL [Suspect]
     Indication: OSTEOPOROSIS
     Dosage: 17.5 MG ONCE WEEKLY, ORAL
     Route: 048
     Dates: start: 20080605, end: 20080805
  2. MERISLON /00141803/ (BETAHISTINE MESILATE) [Concomitant]
  3. TOMIRON (CEFTERAM PIVOXIL) [Concomitant]
  4. OLMESARTAN MEDOXOMIL [Concomitant]
  5. LIPITOR [Concomitant]
  6. BENIDIPINE HYDROCHLORIDE (BENIDIPINE HYDROCHLORIDE) [Concomitant]
  7. ADOFEED (FLURBIPROFEN) [Concomitant]
  8. NEUROTROPIN /00398601/ (CYANOCOBALAMIN, LIDOCAINE HYDROCHLORIDE, PYRID [Concomitant]
  9. VOLTAREN /00372301/ (DICLOFENAC) [Concomitant]
  10. GASMOTIN (MOSAPRIDE CITRATE) [Concomitant]

REACTIONS (2)
  - OSTEOMYELITIS [None]
  - TOOTH EXTRACTION [None]
